FAERS Safety Report 15938201 (Version 1)
Quarter: 2019Q1

REPORT INFORMATION
  Report Type: Spontaneous
  Country: US (occurrence: US)
  Receive Date: 20190208
  Receipt Date: 20190208
  Transmission Date: 20190417
  Serious: Yes (Death)
  Sender: FDA-Public Use
  Company Number: US-FRESENIUS MEDICAL CARE RENAL THERAPIES GROUP-FMC-1902-000168

PATIENT
  Age: 86 Year
  Sex: Female
  Weight: 54 kg

DRUGS (1)
  1. DELFLEX WITH DEXTROSE 1.5% LOW MAGNESIUM LOW CALCIUM [Suspect]
     Active Substance: CALCIUM CHLORIDE\DEXTROSE\MAGNESIUM CHLORIDE\SODIUM CHLORIDE\SODIUM LACTATE
     Indication: END STAGE RENAL DISEASE
     Dosage: CYCLER FOR 4 EXCHANGES, 2000ML FILL VOLUME, 2 HOUR DWELL TIME AND A DAYTIME EXCHANGE OF 2,000ML FOR
     Route: 033
     Dates: start: 20181009

REACTIONS (1)
  - Death [Fatal]

NARRATIVE: CASE EVENT DATE: 20190204
